FAERS Safety Report 25364154 (Version 2)
Quarter: 2025Q3

REPORT INFORMATION
  Report Type: Spontaneous
  Country: IQ (occurrence: IQ)
  Receive Date: 20250527
  Receipt Date: 20250813
  Transmission Date: 20251020
  Serious: Yes (Death)
  Sender: BAYER HEALTHCARE PHARMACEUTICALS INC.
  Company Number: IQ-BAYER-2025A068469

PATIENT
  Age: 56 Year
  Sex: Male

DRUGS (2)
  1. REGORAFENIB [Suspect]
     Active Substance: REGORAFENIB
     Indication: Gastrointestinal stromal tumour
     Dosage: 80 MG, BID
     Dates: start: 202206, end: 2025
  2. REGORAFENIB [Suspect]
     Active Substance: REGORAFENIB
     Indication: Colon cancer metastatic

REACTIONS (26)
  - Death [Fatal]
  - Peripheral swelling [None]
  - Gait inability [None]
  - Blood albumin decreased [None]
  - Protein total decreased [None]
  - Blood iron decreased [None]
  - Blood creatinine decreased [None]
  - Blood urea increased [None]
  - Iron binding capacity total decreased [None]
  - Blood glucose increased [None]
  - Blood chloride increased [None]
  - White blood cell count increased [None]
  - Mean cell volume decreased [None]
  - Mean cell haemoglobin decreased [None]
  - Red cell distribution width increased [None]
  - Neutrophil count increased [None]
  - Vitamin D deficiency [None]
  - Nausea [None]
  - Haematocrit decreased [None]
  - Haemoglobin decreased [None]
  - Blood calcium decreased [None]
  - Tri-iodothyronine decreased [None]
  - Blood thyroid stimulating hormone increased [None]
  - Thyroxine decreased [None]
  - Red blood cell count decreased [None]
  - Lymphocyte percentage decreased [None]

NARRATIVE: CASE EVENT DATE: 20250605
